FAERS Safety Report 5286413-7 (Version None)
Quarter: 2007Q1

REPORT INFORMATION
  Report Type: 
  Country: None (occurrence: None)
  Receive Date: 20070116
  Receipt Date: 20061025
  Transmission Date: 20070707
  Serious: No
  Sender: FDA-Public Use
  Company Number: 2006SP003828

PATIENT
  Age: 67 Year
  Sex: Male

DRUGS (5)
  1. LUNESTA [Suspect]
     Indication: INSOMNIA
     Dosage: 2 MG;ORAL
     Route: 048
     Dates: start: 20060101
  2. COREG [Concomitant]
  3. WARFARIN SODIUM [Concomitant]
  4. WELLBUTRIN [Concomitant]
  5. DIGOXIN [Concomitant]

REACTIONS (1)
  - DYSGEUSIA [None]
